FAERS Safety Report 10243001 (Version 3)
Quarter: 2014Q3

REPORT INFORMATION
  Report Type: Not Available
  Country: FR (occurrence: FR)
  Receive Date: 20140618
  Receipt Date: 20140714
  Transmission Date: 20150326
  Serious: Yes (Hospitalization)
  Sender: FDA-Public Use
  Company Number: FR-BEH-2014043139

PATIENT
  Age: 77 Year
  Sex: Male

DRUGS (3)
  1. LASILIX [Concomitant]
     Active Substance: FUROSEMIDE
  2. PRIVIGEN [Suspect]
     Active Substance: HUMAN IMMUNOGLOBULIN G
     Dosage: 2 VIALS OF 20G/200ML
     Route: 042
     Dates: start: 20140402, end: 20140402
  3. PRIVIGEN [Suspect]
     Active Substance: HUMAN IMMUNOGLOBULIN G
     Indication: HYPOGAMMAGLOBULINAEMIA
     Dosage: 1 VIAL OF 5G/50ML
     Route: 042
     Dates: start: 20140402, end: 20140402

REACTIONS (2)
  - Shock [Recovered/Resolved]
  - Haemodynamic instability [Recovered/Resolved]

NARRATIVE: CASE EVENT DATE: 20140402
